FAERS Safety Report 21671634 (Version 2)
Quarter: 2022Q4

REPORT INFORMATION
  Report Type: Spontaneous
  Country: CN (occurrence: None)
  Receive Date: 20221202
  Receipt Date: 20221206
  Transmission Date: 20230113
  Serious: Yes (Death, Other)
  Sender: FDA-Public Use
  Company Number: CN-ROCHE-3227275

PATIENT
  Age: 42 Year
  Sex: Male
  Weight: 69 kg

DRUGS (9)
  1. GAZYVA [Suspect]
     Active Substance: OBINUTUZUMAB
     Indication: Follicular lymphoma
     Route: 065
     Dates: start: 20220128
  2. POLATUZUMAB VEDOTIN [Suspect]
     Active Substance: POLATUZUMAB VEDOTIN
     Indication: Follicular lymphoma
     Dosage: 1.4 MG/KG
     Route: 042
     Dates: start: 20220518
  3. GEMCITABINE [Concomitant]
     Active Substance: GEMCITABINE
     Indication: Follicular lymphoma
     Dates: start: 20220128
  4. OXALIPLATIN [Concomitant]
     Active Substance: OXALIPLATIN
     Indication: Follicular lymphoma
     Dates: start: 20220128
  5. RITUXIMAB [Concomitant]
     Active Substance: RITUXIMAB
     Indication: Follicular lymphoma
     Dosage: NON-ROCHE DRUG; 21/FEB/2022, 19/MAR/2022, 11/APR/2022
     Dates: start: 20220518
  6. BENDAMUSTINE [Concomitant]
     Active Substance: BENDAMUSTINE
     Indication: Follicular lymphoma
     Dosage: NON-ROCHE DRUG; 21/FEB/2022, 19/MAR/2022, 11/APR/2022
     Dates: start: 20220518
  7. METHYLPREDNISOLONE SODIUM SUCCINATE [Concomitant]
     Active Substance: METHYLPREDNISOLONE SODIUM SUCCINATE
     Indication: Follicular lymphoma
     Route: 041
     Dates: start: 20220518
  8. CHLORPROMAZINE [Concomitant]
     Active Substance: CHLORPROMAZINE
     Route: 030
     Dates: start: 20220518
  9. CHLORPHENIRAMINE MALEATE [Concomitant]
     Active Substance: CHLORPHENIRAMINE MALEATE
     Route: 048
     Dates: start: 20220518

REACTIONS (4)
  - Myelosuppression [Unknown]
  - Liver injury [Unknown]
  - Abdominal discomfort [Unknown]
  - Infection [Fatal]

NARRATIVE: CASE EVENT DATE: 20220718
